FAERS Safety Report 12574426 (Version 1)
Quarter: 2016Q3

REPORT INFORMATION
  Report Type: Spontaneous
  Country: US (occurrence: None)
  Receive Date: 20160719
  Receipt Date: 20160719
  Transmission Date: 20161109
  Serious: Yes (Other)
  Sender: FDA-Public Use
  Company Number: None

PATIENT
  Age: 57 Year
  Sex: Female

DRUGS (12)
  1. AMPYRA [Suspect]
     Active Substance: DALFAMPRIDINE
     Indication: MULTIPLE SCLEROSIS
     Route: 048
     Dates: start: 201202
  2. SIMVASTATIN. [Concomitant]
     Active Substance: SIMVASTATIN
  3. LORAZEPAM. [Concomitant]
     Active Substance: LORAZEPAM
  4. ONDANSETRON [Concomitant]
     Active Substance: ONDANSETRON
  5. FENTANYL. [Concomitant]
     Active Substance: FENTANYL
  6. FINGOLIMOD [Concomitant]
     Active Substance: FINGOLIMOD
  7. WARFARIN [Concomitant]
     Active Substance: WARFARIN
  8. OXYBUTYNIN [Concomitant]
     Active Substance: OXYBUTYNIN
  9. ALBUTEROL. [Concomitant]
     Active Substance: ALBUTEROL
  10. OXYCODONE/APAP [Concomitant]
     Active Substance: ACETAMINOPHEN\OXYCODONE HYDROCHLORIDE
  11. IBANDRONATE [Concomitant]
     Active Substance: IBANDRONATE SODIUM
  12. MODAFINIL. [Concomitant]
     Active Substance: MODAFINIL

REACTIONS (2)
  - Pseudomonas test positive [None]
  - Urine analysis abnormal [None]

NARRATIVE: CASE EVENT DATE: 20160625
